FAERS Safety Report 9267401 (Version 3)
Quarter: 2013Q3

REPORT INFORMATION
  Report Type: Spontaneous
  Country: US (occurrence: US)
  Receive Date: 20130502
  Receipt Date: 20130717
  Transmission Date: 20140515
  Serious: Yes (Hospitalization, Other)
  Sender: FDA-Public Use
  Company Number: US-JNJFOC-20130417510

PATIENT
  Age: 21 Year
  Sex: Male
  Weight: 83.9 kg

DRUGS (15)
  1. DACOGEN [Suspect]
     Indication: ACUTE LYMPHOCYTIC LEUKAEMIA
     Dosage: DAYS 1-4
     Route: 042
     Dates: start: 20130114, end: 20130122
  2. DOXORUBICIN HCL [Suspect]
     Indication: ACUTE LYMPHOCYTIC LEUKAEMIA
     Route: 042
  3. VORINOSTAT [Suspect]
     Indication: ACUTE LYMPHOCYTIC LEUKAEMIA
     Dosage: DAYS 1-4
     Route: 048
  4. VINCRISTINE [Suspect]
     Indication: ACUTE LYMPHOCYTIC LEUKAEMIA
  5. PREDNISONE (PREDNISONE) [Suspect]
     Indication: ACUTE LYMPHOCYTIC LEUKAEMIA
  6. PEG-ASPARAGINASE [Suspect]
     Indication: ACUTE LYMPHOCYTIC LEUKAEMIA
  7. LOPRESSOR (METOPROLOL TARTRATE) [Concomitant]
     Route: 048
  8. EFFIENT (PRASUGREL) [Concomitant]
     Route: 048
  9. MULTIPLE VITAMIN (MULTIPLE VITAMINS) [Concomitant]
     Route: 048
  10. CALCIUM AND VITAMIN D (CALCIUM W/VITAMIN D NOS) [Concomitant]
     Dosage: 2000 UNITS
     Route: 048
  11. EFFEXOR (VANLAFAXINE) [Concomitant]
     Route: 048
  12. FLONASE (FLUTICASONE PROPIONATE) [Concomitant]
     Dosage: 2 SPRAYS DAILY
     Route: 045
  13. ZOCOR (SIMVASTATIN) [Concomitant]
     Route: 048
  14. PROVENTIL [Concomitant]
     Dosage: 1-2 PUFFS EVERY 4 HOURS AS NEEDED
     Route: 055
  15. TYLENOL (PARACETAMOL) [Concomitant]
     Dosage: 1-2 TABLETS EVERY 4 HOURS AS NEEDED.
     Route: 048

REACTIONS (2)
  - Deep vein thrombosis [Recovered/Resolved]
  - Viral infection [Unknown]
